FAERS Safety Report 7803277-5 (Version None)
Quarter: 2011Q4

REPORT INFORMATION
  Report Type: 
  Country: None (occurrence: None)
  Receive Date: 20111005
  Receipt Date: 20110926
  Transmission Date: 20120403
  Serious: Yes (Hospitalization)
  Sender: FDA-Public Use
  Company Number: 2011001110

PATIENT
  Age: 61 Year
  Sex: Female

DRUGS (2)
  1. TARCEVA [Suspect]
     Indication: PANCREATIC CARCINOMA
     Dosage: 150 MG, UID/QD, ORAL; 150 MG, UID/QD, ORAL
     Route: 048
     Dates: start: 20110201
  2. TARCEVA [Suspect]
     Indication: PANCREATIC CARCINOMA
     Dosage: 150 MG, UID/QD, ORAL; 150 MG, UID/QD, ORAL
     Route: 048
     Dates: start: 20110218

REACTIONS (6)
  - PANCREATIC DISORDER [None]
  - STOMATITIS [None]
  - DYSPEPSIA [None]
  - DEHYDRATION [None]
  - VOMITING [None]
  - WEIGHT DECREASED [None]
